FAERS Safety Report 8181445-3 (Version None)
Quarter: 2012Q1

REPORT INFORMATION
  Report Type: 
  Country: None (occurrence: None)
  Receive Date: 20120301
  Receipt Date: 20120301
  Transmission Date: 20120608
  Serious: Yes (Life-Threatening, Other)
  Sender: FDA-Public Use
  Company Number: None

PATIENT
  Sex: Male
  Weight: 20.4119 kg

DRUGS (2)
  1. LAMICTAL [Suspect]
     Indication: CONVULSION
     Dosage: 25MG/60  1 PILL 2X DAY TABLET GENERIC FROM 10/7/11-2/16/12
     Dates: start: 20111017, end: 20120216
  2. LAMICTAL [Suspect]
     Indication: CONVULSION
     Dosage: 25MG/60  1 PILL 2X DAY TABLET GENERIC FROM 10/7/11-2/16/12
     Dates: start: 20120216

REACTIONS (2)
  - PRODUCT SUBSTITUTION ISSUE [None]
  - DRUG INEFFECTIVE [None]
